FAERS Safety Report 23697410 (Version 3)
Quarter: 2024Q3

REPORT INFORMATION
  Report Type: Report from Study
  Country: CA (occurrence: CA)
  Receive Date: 20240402
  Receipt Date: 20240902
  Transmission Date: 20241016
  Serious: Yes (Other)
  Sender: SANDOZ
  Company Number: CA-002147023-NVSC2023CA100273

PATIENT
  Sex: Female

DRUGS (4)
  1. HYRIMOZ [Suspect]
     Active Substance: ADALIMUMAB-ADAZ
     Indication: Hidradenitis
     Dosage: 80 MG
     Route: 058
     Dates: start: 20230429
  2. HYRIMOZ [Suspect]
     Active Substance: ADALIMUMAB-ADAZ
     Dosage: 40 MG, PRE-FILLED PEN
     Route: 058
  3. HYRIMOZ [Suspect]
     Active Substance: ADALIMUMAB-ADAZ
     Dosage: 40 MG, QW
     Route: 058
     Dates: start: 20230429
  4. HYRIMOZ [Suspect]
     Active Substance: ADALIMUMAB-ADAZ
     Dosage: 40 MG, Q2W
     Route: 058

REACTIONS (14)
  - Loss of consciousness [Unknown]
  - Tunnel vision [Unknown]
  - Precancerous condition [Unknown]
  - Hidradenitis [Unknown]
  - Condition aggravated [Unknown]
  - Fear of injection [Unknown]
  - Disease recurrence [Recovering/Resolving]
  - Salivary gland calculus [Unknown]
  - Panic attack [Unknown]
  - Tinnitus [Unknown]
  - Malaise [Unknown]
  - Anxiety [Unknown]
  - Inappropriate schedule of product administration [Unknown]
  - Intentional dose omission [Unknown]
